FAERS Safety Report 9278817 (Version 1)
Quarter: 2013Q2

REPORT INFORMATION
  Report Type: Spontaneous
  Country: US (occurrence: US)
  Receive Date: 20130508
  Receipt Date: 20130508
  Transmission Date: 20140414
  Serious: Yes (Other)
  Sender: FDA-Public Use
  Company Number: US-PERRIGO-13US004711

PATIENT
  Age: 10 Year
  Sex: Male
  Weight: 33.11 kg

DRUGS (2)
  1. IBUPROFEN 20 MG/ML CHILD BERRY 685 [Suspect]
     Indication: PYREXIA
     Dosage: 300 MG, UNK
     Route: 048
     Dates: start: 20130426, end: 20130429
  2. TYLENOL [Suspect]
     Indication: PYREXIA
     Dosage: UNK, UNK
     Route: 048
     Dates: start: 20130426, end: 20130429

REACTIONS (3)
  - Musculoskeletal stiffness [Not Recovered/Not Resolved]
  - Viral infection [Not Recovered/Not Resolved]
  - Hypersensitivity [Not Recovered/Not Resolved]
